FAERS Safety Report 9914781 (Version 1)
Quarter: 2014Q1

REPORT INFORMATION
  Report Type: Spontaneous
  Country: US (occurrence: None)
  Receive Date: 20140210
  Receipt Date: 20140210
  Transmission Date: 20141002
  Serious: Yes (Other)
  Sender: FDA-Public Use
  Company Number: LIT-007-14-US

PATIENT
  Age: 3 Year
  Sex: Female

DRUGS (3)
  1. HUMAN NORMAL IMMUNOGLOBULIN [Suspect]
     Indication: IMMUNE THROMBOCYTOPENIC PURPURA
     Route: 042
  2. DIPHENHYDRAMINE [Concomitant]
  3. METHYLPREDNISOLONE [Concomitant]

REACTIONS (10)
  - Headache [None]
  - Vomiting [None]
  - Lethargy [None]
  - Convulsion [None]
  - Stridor [None]
  - Irritability [None]
  - Disorientation [None]
  - Ischaemic cerebral infarction [None]
  - Encephalopathy [None]
  - Cerebral haemorrhage [None]
